FAERS Safety Report 21529617 (Version 1)
Quarter: 2022Q4

REPORT INFORMATION
  Report Type: Report from Study
  Country: US (occurrence: US)
  Receive Date: 20221031
  Receipt Date: 20221031
  Transmission Date: 20230113
  Serious: Yes (Hospitalization)
  Sender: FDA-Public Use
  Company Number: US-ABBVIE-22K-163-4404535-00

PATIENT
  Age: 67 Year
  Sex: Female
  Weight: 78.925 kg

DRUGS (5)
  1. VENCLEXTA [Suspect]
     Active Substance: VENETOCLAX
     Indication: Lymphoma
     Route: 048
     Dates: start: 20220517
  2. VENCLEXTA [Suspect]
     Active Substance: VENETOCLAX
     Indication: Lymphoma
     Route: 048
  3. VENCLEXTA [Suspect]
     Active Substance: VENETOCLAX
     Indication: Lymphoma
     Route: 048
  4. VENCLEXTA [Suspect]
     Active Substance: VENETOCLAX
     Indication: Lymphoma
     Dosage: WITH MEAL
     Route: 048
  5. TAFASITAMAB [Concomitant]
     Active Substance: TAFASITAMAB
     Indication: Chronic lymphocytic leukaemia
     Dosage: FREQUENCY TEXT: DAY 8, 15, 22 THEN EVERY 4 WEEKS
     Route: 042
     Dates: start: 20220603

REACTIONS (1)
  - Dyspnoea [Recovered/Resolved]

NARRATIVE: CASE EVENT DATE: 20220606
